FAERS Safety Report 10775967 (Version 1)
Quarter: 2015Q1

REPORT INFORMATION
  Report Type: Spontaneous
  Country: US (occurrence: None)
  Receive Date: 20150205
  Receipt Date: 20150205
  Transmission Date: 20150721
  Serious: No
  Sender: FDA-Public Use
  Company Number: None

PATIENT
  Age: 28 Year
  Sex: Female
  Weight: 52.16 kg

DRUGS (1)
  1. DICLEGIS [Suspect]
     Active Substance: DOXYLAMINE SUCCINATE\PYRIDOXINE HYDROCHLORIDE
     Indication: VOMITING IN PREGNANCY
     Dosage: 2 PILL BEFORE BEDTIME, TAKEN BY MOUTH
     Dates: start: 20150202, end: 20150204

REACTIONS (3)
  - Insomnia [None]
  - Exposure during pregnancy [None]
  - Headache [None]

NARRATIVE: CASE EVENT DATE: 20150203
